FAERS Safety Report 6726524-X (Version None)
Quarter: 2010Q2

REPORT INFORMATION
  Report Type: 
  Country: None (occurrence: None)
  Receive Date: 20100514
  Receipt Date: 20100402
  Transmission Date: 20101027
  Serious: Yes (Death, Other)
  Sender: FDA-Public Use
  Company Number: US-BAXTER-2009BH018702

PATIENT
  Age: 53 Year
  Sex: Female
  Weight: 66 kg

DRUGS (11)
  1. HEPARIN SODIUM INJECTION [Suspect]
     Indication: PROTEIN S DEFICIENCY
     Route: 042
     Dates: start: 20071120
  2. HEPARIN SODIUM INJECTION [Suspect]
     Route: 058
  3. HEPARIN SODIUM 1,000 UNITS AND SODIUM CHLORIDE 0.9% [Suspect]
     Indication: PROTEIN S DEFICIENCY
     Route: 042
     Dates: start: 20071120
  4. VICODIN [Concomitant]
     Indication: DRUG USE FOR UNKNOWN INDICATION
     Route: 065
  5. ASPIRIN [Concomitant]
     Indication: DRUG USE FOR UNKNOWN INDICATION
     Route: 065
  6. WARFARIN SODIUM [Concomitant]
     Indication: PROTEIN S DEFICIENCY
     Route: 065
  7. MORPHINE [Concomitant]
     Indication: DRUG USE FOR UNKNOWN INDICATION
     Route: 065
  8. ANTIBIOTICS [Concomitant]
     Indication: BRONCHITIS
     Route: 065
     Dates: start: 20071101
  9. AVELOX [Concomitant]
     Indication: DRUG USE FOR UNKNOWN INDICATION
     Route: 065
  10. PEPCID [Concomitant]
     Indication: DRUG USE FOR UNKNOWN INDICATION
     Route: 065
  11. LOVENOX [Concomitant]
     Indication: ANTICOAGULANT THERAPY
     Route: 065
     Dates: start: 20071101

REACTIONS (6)
  - ASTHENIA [None]
  - DYSPNOEA [None]
  - HYPOTENSION [None]
  - SMALL CELL LUNG CANCER METASTATIC [None]
  - SWELLING [None]
  - UNRESPONSIVE TO STIMULI [None]
